FAERS Safety Report 20348512 (Version 1)
Quarter: 2022Q1

REPORT INFORMATION
  Report Type: Spontaneous
  Country: US (occurrence: US)
  Receive Date: 20220119
  Receipt Date: 20220119
  Transmission Date: 20220423
  Serious: No
  Sender: FDA-Public Use
  Company Number: US-AMGEN-USASP2022006839

PATIENT
  Age: 41 Year
  Sex: Male

DRUGS (2)
  1. OTEZLA [Suspect]
     Active Substance: APREMILAST
     Indication: Psoriasis
     Dosage: 30 MILLIGRAM, QD (WITH EVENING MEAL)
     Route: 048
     Dates: start: 20200806
  2. TALTZ [Concomitant]
     Active Substance: IXEKIZUMAB
     Dosage: 80MG/ML

REACTIONS (2)
  - Illness [Not Recovered/Not Resolved]
  - Off label use [Unknown]

NARRATIVE: CASE EVENT DATE: 20200806
